FAERS Safety Report 10012502 (Version 1)
Quarter: 2014Q1

REPORT INFORMATION
  Report Type: Report from Study
  Country: DE (occurrence: DE)
  Receive Date: 20140314
  Receipt Date: 20140314
  Transmission Date: 20141002
  Serious: Yes (Death, Hospitalization)
  Sender: FDA-Public Use
  Company Number: DE-SA-2014SA031290

PATIENT
  Sex: 0

DRUGS (3)
  1. OXALIPLATIN [Suspect]
     Indication: METASTATIC NEOPLASM
     Dosage: ON DAYS 1AND 8
     Route: 042
  2. CAPECITABINE [Suspect]
     Indication: METASTATIC NEOPLASM
     Dosage: ON DAY S 1-14
     Route: 048
  3. DOCETAXEL [Suspect]
     Indication: METASTATIC NEOPLASM
     Dosage: ON DAYS 1 AND 8
     Route: 042

REACTIONS (2)
  - Diarrhoea [Unknown]
  - Sepsis [Fatal]
